FAERS Safety Report 19056197 (Version 1)
Quarter: 2021Q1

REPORT INFORMATION
  Report Type: Spontaneous
  Country: CA (occurrence: CA)
  Receive Date: 20210325
  Receipt Date: 20210325
  Transmission Date: 20210420
  Serious: Yes (Other)
  Sender: FDA-Public Use
  Company Number: CA-ASTRAZENECA-2021A176898

PATIENT
  Age: 61 Year
  Sex: Male

DRUGS (1)
  1. PULMICORT TURBUHALER [Suspect]
     Active Substance: BUDESONIDE
     Indication: ASTHMA
     Dosage: 1?2 INHALATIONS EVERY 4 HOURS AS NEEDED
     Route: 055

REACTIONS (3)
  - Wheezing [Not Recovered/Not Resolved]
  - Device defective [Unknown]
  - Drug ineffective [Unknown]
